FAERS Safety Report 5493961-3 (Version None)
Quarter: 2007Q4

REPORT INFORMATION
  Report Type: 
  Country: None (occurrence: None)
  Receive Date: 20071023
  Receipt Date: 20071011
  Transmission Date: 20080405
  Serious: Yes (Hospitalization)
  Sender: FDA-Public Use
  Company Number: JP-PFIZER INC-2006086162

PATIENT
  Sex: Male

DRUGS (7)
  1. ZITHROMAX [Suspect]
     Indication: OPPORTUNISTIC INFECTION PROPHYLAXIS
     Route: 048
     Dates: start: 20060111, end: 20060514
  2. RETROVIR [Concomitant]
     Indication: HIV INFECTION
     Route: 048
     Dates: start: 20060111, end: 20060514
  3. EMTRICITABINE [Concomitant]
     Route: 048
     Dates: start: 20060111, end: 20061004
  4. KALETRA [Concomitant]
     Route: 048
     Dates: start: 20060111, end: 20061004
  5. URSO 250 [Concomitant]
     Route: 048
     Dates: start: 20060111, end: 20061004
  6. VALGANCICLOVIR HCL [Concomitant]
     Route: 048
     Dates: start: 20060401, end: 20060514
  7. FUNGIZONE [Concomitant]
     Route: 048
     Dates: start: 20060401, end: 20060514

REACTIONS (1)
  - ANAEMIA [None]
